FAERS Safety Report 17650809 (Version 14)
Quarter: 2023Q1

REPORT INFORMATION
  Report Type: Report from Study
  Country: HU (occurrence: HU)
  Receive Date: 20200409
  Receipt Date: 20230110
  Transmission Date: 20230418
  Serious: Yes (Other)
  Sender: FDA-Public Use
  Company Number: NVSC2020HU012237

PATIENT
  Age: 2 Year
  Sex: Male
  Weight: 10.6 kg

DRUGS (11)
  1. ZOLGENSMA [Suspect]
     Active Substance: ONASEMNOGENE ABEPARVOVEC-XIOI
     Indication: Spinal muscular atrophy
     Dosage: 60.5 ML, ONCE/SINGLE
     Route: 042
     Dates: start: 20191125
  2. AMOXICILLIN\CLAVULANATE POTASSIUM [Suspect]
     Active Substance: AMOXICILLIN\CLAVULANATE POTASSIUM
     Indication: Product used for unknown indication
     Dosage: 2*3.5 ML
     Route: 065
     Dates: start: 20200219, end: 20200226
  3. VIGANTOL [Concomitant]
     Indication: Product used for unknown indication
     Dosage: 2 DRP
     Route: 065
  4. PREDNISOLONE [Concomitant]
     Active Substance: PREDNISOLONE
     Indication: Product used for unknown indication
     Dosage: 1 MG/KG
     Route: 054
     Dates: start: 20191125, end: 20200123
  5. FAMOTIDINE [Concomitant]
     Active Substance: FAMOTIDINE
     Indication: Gastritis prophylaxis
     Dosage: 1 MG/KG
     Route: 065
  6. FAMOTIDINE [Concomitant]
     Active Substance: FAMOTIDINE
     Dosage: 5 MG
     Route: 065
     Dates: start: 20191125, end: 20200123
  7. NUSINERSEN [Concomitant]
     Active Substance: NUSINERSEN
     Indication: Product used for unknown indication
     Dosage: UNK
     Route: 065
  8. OXYMETAZOLINE [Concomitant]
     Active Substance: OXYMETAZOLINE
     Indication: Product used for unknown indication
     Dosage: 2*1-1 DRP
     Route: 065
     Dates: start: 20200219, end: 20200226
  9. VENTOLIN [Concomitant]
     Active Substance: ALBUTEROL SULFATE
     Indication: Product used for unknown indication
     Dosage: 3*2 PUFF
     Route: 065
     Dates: start: 20200219, end: 20200229
  10. FLUTICASONE PROPIONATE [Concomitant]
     Active Substance: FLUTICASONE PROPIONATE
     Indication: Product used for unknown indication
     Dosage: 2*2 PUFF
     Route: 065
     Dates: start: 20200219, end: 20200226
  11. FENOTEROL HYDROBROMIDE\IPRATROPIUM BROMIDE [Concomitant]
     Active Substance: FENOTEROL HYDROBROMIDE\IPRATROPIUM BROMIDE
     Indication: Product used for unknown indication
     Dosage: 3*10 DRP
     Dates: start: 20200219, end: 20200225

REACTIONS (28)
  - Blood lactate dehydrogenase increased [Unknown]
  - Troponin I increased [Unknown]
  - Gamma-glutamyltransferase increased [Recovered/Resolved]
  - Aspartate aminotransferase increased [Recovered/Resolved]
  - Alanine aminotransferase increased [Recovered/Resolved]
  - Granulocytopenia [Unknown]
  - Neutropenia [Unknown]
  - Thrombocytopenia [Recovered/Resolved]
  - Leukopenia [Recovered/Resolved]
  - Pain in extremity [Recovered/Resolved]
  - White blood cell count decreased [Unknown]
  - Granulocyte count decreased [Unknown]
  - Pyrexia [Unknown]
  - Weight decreased [Unknown]
  - Leukopenia [Unknown]
  - Appetite disorder [Unknown]
  - Bronchitis [Recovered/Resolved]
  - Otitis media [Recovered/Resolved]
  - Lymphocyte count increased [Unknown]
  - Monocyte count increased [Unknown]
  - White blood cell count increased [Unknown]
  - Neutrophil count decreased [Unknown]
  - C-reactive protein increased [Unknown]
  - Upper respiratory tract infection [Unknown]
  - Hepatic enzyme increased [Unknown]
  - Platelet count decreased [Unknown]
  - Pyrexia [Recovered/Resolved]
  - Transaminases increased [Unknown]

NARRATIVE: CASE EVENT DATE: 20190101
